FAERS Safety Report 5353812-4 (Version None)
Quarter: 2007Q2

REPORT INFORMATION
  Report Type: 
  Country: None (occurrence: None)
  Receive Date: 20070608
  Receipt Date: 20070608
  Transmission Date: 20071010
  Serious: Yes (Hospitalization)
  Sender: FDA-Public Use
  Company Number: None

PATIENT
  Age: 47 Year
  Sex: Male
  Weight: 106.5953 kg

DRUGS (1)
  1. EFFEXOR [Suspect]
     Indication: ADVERSE EVENT
     Dosage: 300MG ONCE A DAY PO
     Route: 048
     Dates: start: 20041210, end: 20061215

REACTIONS (10)
  - DEPRESSION [None]
  - DIZZINESS [None]
  - DRUG WITHDRAWAL SYNDROME [None]
  - DYSPNOEA [None]
  - FATIGUE [None]
  - IRRITABILITY [None]
  - LOSS OF LIBIDO [None]
  - NAUSEA [None]
  - NERVOUSNESS [None]
  - PALPITATIONS [None]
